FAERS Safety Report 13299314 (Version 3)
Quarter: 2017Q1

REPORT INFORMATION
  Report Type: Spontaneous
  Country: US (occurrence: US)
  Receive Date: 20170306
  Receipt Date: 20170323
  Transmission Date: 20170428
  Serious: Yes (Hospitalization, Other)
  Sender: FDA-Public Use
  Company Number: US-ELI_LILLY_AND_COMPANY-US201608002964

PATIENT
  Age: 35 Year
  Sex: Male
  Weight: 63.9 kg

DRUGS (7)
  1. PREVACID [Concomitant]
     Active Substance: LANSOPRAZOLE
     Route: 048
  2. AMOXICILLIN                        /02043401/ [Concomitant]
     Route: 048
  3. CYMBALTA [Suspect]
     Active Substance: DULOXETINE HYDROCHLORIDE
     Indication: PRODUCT USED FOR UNKNOWN INDICATION
     Dosage: 40 MG, QD
     Dates: start: 20091026, end: 20110110
  4. CYMBALTA [Suspect]
     Active Substance: DULOXETINE HYDROCHLORIDE
     Dosage: 40 MG, QD
     Route: 048
     Dates: start: 20130501, end: 20130506
  5. TRIZIVIR [Concomitant]
     Active Substance: ABACAVIR SULFATE\LAMIVUDINE\ZIDOVUDINE
     Route: 048
  6. CYMBALTA [Suspect]
     Active Substance: DULOXETINE HYDROCHLORIDE
     Dosage: 60 MG, QD
     Route: 048
     Dates: start: 20110706, end: 20130501
  7. MARINOL                            /00003301/ [Concomitant]
     Route: 048

REACTIONS (13)
  - Drug withdrawal syndrome [Unknown]
  - Vertigo [Unknown]
  - Seizure [Unknown]
  - Anxiety [Unknown]
  - Insomnia [Unknown]
  - Confusional state [Unknown]
  - Nausea [Unknown]
  - Fatigue [Unknown]
  - Dizziness [Unknown]
  - Headache [Unknown]
  - Syncope [Unknown]
  - Dysphoria [Unknown]
  - Tremor [Unknown]

NARRATIVE: CASE EVENT DATE: 20111109
